FAERS Safety Report 4270991-0 (Version None)
Quarter: 2004Q1

REPORT INFORMATION
  Report Type: 
  Country: None (occurrence: None)
  Receive Date: 20040114
  Receipt Date: 20040108
  Transmission Date: 20041129
  Serious: Yes (Hospitalization)
  Sender: FDA-Public Use
  Company Number: WAES 0401USA00628

PATIENT
  Sex: Male
  Weight: 61 kg

DRUGS (1)
  1. STROMECTOL [Suspect]
     Route: 048
     Dates: start: 20030728, end: 20030728

REACTIONS (5)
  - ARTHRALGIA [None]
  - ASTHENIA [None]
  - DYSSTASIA [None]
  - HYPOTENSION [None]
  - MALAISE [None]
